FAERS Safety Report 24541791 (Version 4)
Quarter: 2025Q1

REPORT INFORMATION
  Report Type: Report from Study
  Country: US (occurrence: US)
  Receive Date: 20241023
  Receipt Date: 20250109
  Transmission Date: 20250408
  Serious: No
  Sender: SUNOVION
  Company Number: US-SUMITOMO PHARMA SWITZERLAND GMBH-2024SPA004055

PATIENT

DRUGS (2)
  1. ORGOVYX [Suspect]
     Active Substance: RELUGOLIX
     Indication: Prostate cancer
     Route: 048
     Dates: start: 20241005, end: 20241005
  2. ORGOVYX [Suspect]
     Active Substance: RELUGOLIX
     Dosage: 120 MG, QD
     Route: 048
     Dates: start: 20241006

REACTIONS (10)
  - Sleep disorder [Unknown]
  - Nocturia [Unknown]
  - Energy increased [Unknown]
  - Liver function test increased [Unknown]
  - Chills [Unknown]
  - Pyrexia [Unknown]
  - Oropharyngeal pain [Unknown]
  - Blood glucose increased [Unknown]
  - Blood triglycerides increased [Unknown]
  - Hot flush [Unknown]
